FAERS Safety Report 20677850 (Version 2)
Quarter: 2022Q2

REPORT INFORMATION
  Report Type: Report from Study
  Country: CO (occurrence: CO)
  Receive Date: 20220406
  Receipt Date: 20220602
  Transmission Date: 20220720
  Serious: Yes (Death)
  Sender: FDA-Public Use
  Company Number: CO-BIOGEN-2021BI01031172

PATIENT
  Sex: Male
  Weight: 60 kg

DRUGS (3)
  1. TYSABRI [Suspect]
     Active Substance: NATALIZUMAB
     Indication: Multiple sclerosis
     Route: 042
     Dates: start: 20190114
  2. DALFAMPRIDINE [Suspect]
     Active Substance: DALFAMPRIDINE
     Indication: Gait disturbance
     Route: 048
     Dates: start: 20201102, end: 20211207
  3. VITAMIN C [Concomitant]
     Active Substance: ASCORBIC ACID
     Indication: Supplementation therapy
     Route: 048
     Dates: start: 201807

REACTIONS (3)
  - Death [Fatal]
  - Gait inability [Unknown]
  - Mobility decreased [Unknown]

NARRATIVE: CASE EVENT DATE: 20200101
